FAERS Safety Report 6348642-0 (Version None)
Quarter: 2009Q3

REPORT INFORMATION
  Report Type: 
  Country: None (occurrence: None)
  Receive Date: 20090908
  Receipt Date: 20090826
  Transmission Date: 20100115
  Serious: Yes (Hospitalization)
  Sender: FDA-Public Use
  Company Number: 238371K09USA

PATIENT
  Age: 56 Year
  Sex: Male

DRUGS (5)
  1. REBIF [Suspect]
     Indication: MULTIPLE SCLEROSIS
     Dosage: 8.8 MCG, 3 IN 1 WEEKS, SUBCUTANEOUS
     Route: 058
     Dates: start: 20090721, end: 20090728
  2. STEROIDS (CORTICOSTEROIDS) [Concomitant]
  3. ZANTAC 150 [Concomitant]
  4. LOTREL [Concomitant]
  5. UNSPECIFIED MEDICATION (DRUG USED IN DIABETES) [Concomitant]

REACTIONS (8)
  - ASTHENIA [None]
  - DEHYDRATION [None]
  - EROSIVE OESOPHAGITIS [None]
  - GASTRITIS [None]
  - HICCUPS [None]
  - NAUSEA [None]
  - SYNCOPE [None]
  - VOMITING [None]
